FAERS Safety Report 14588777 (Version 1)
Quarter: 2018Q1

REPORT INFORMATION
  Report Type: Spontaneous
  Country: US (occurrence: US)
  Receive Date: 20180301
  Receipt Date: 20180301
  Transmission Date: 20180509
  Serious: Yes (Hospitalization, Other)
  Sender: FDA-Public Use
  Company Number: US-GLAXOSMITHKLINE-US2018031736

PATIENT
  Age: 11 Year
  Sex: Male

DRUGS (3)
  1. ADVAIR HFA [Suspect]
     Active Substance: FLUTICASONE PROPIONATE\SALMETEROL XINAFOATE
     Indication: ASTHMA
     Dosage: TWO PUFFS TWICE A DAY FROM INHALER
     Route: 055
  2. FLOVENT [Suspect]
     Active Substance: FLUTICASONE PROPIONATE
     Indication: ASTHMA
     Dosage: TWO PUFFS TWICE A DAY O FROM INHALER (PATIENT WAS RECEIVING 880 MCG OF FLOVENT PER DAY).
     Route: 055
  3. QVAR [Suspect]
     Active Substance: BECLOMETHASONE DIPROPIONATE
     Indication: ASTHMA
     Dosage: ONE PUFF TWICE A DAY FROM INHALER
     Route: 055

REACTIONS (3)
  - Withdrawal syndrome [Unknown]
  - Intracranial pressure increased [Recovering/Resolving]
  - Adrenal insufficiency [Not Recovered/Not Resolved]
